FAERS Safety Report 5757626-2 (Version None)
Quarter: 2008Q2

REPORT INFORMATION
  Report Type: 
  Country: None (occurrence: None)
  Receive Date: 20080603
  Receipt Date: 20080522
  Transmission Date: 20081010
  Serious: Yes (Other)
  Sender: FDA-Public Use
  Company Number: CN-PFIZER INC-2008044263

PATIENT
  Age: 5 Year
  Sex: Female
  Weight: 25 kg

DRUGS (2)
  1. ZITHROMAX [Suspect]
     Indication: COUGH
     Route: 048
     Dates: start: 20080515, end: 20080517
  2. ZITHROMAX [Suspect]
     Route: 048
     Dates: start: 20080518, end: 20080520

REACTIONS (1)
  - OTITIS MEDIA [None]
